FAERS Safety Report 4967833-4 (Version None)
Quarter: 2006Q2

REPORT INFORMATION
  Report Type: 
  Country: None (occurrence: None)
  Receive Date: 20060410
  Receipt Date: 20051025
  Transmission Date: 20061013
  Serious: Yes (Hospitalization, Disabling)
  Sender: FDA-Public Use
  Company Number: US-MERCK-0510USA09268

PATIENT
  Age: 59 Year
  Sex: Female
  Weight: 82 kg

DRUGS (7)
  1. VIOXX [Suspect]
     Indication: PAIN
     Route: 048
     Dates: start: 20030501, end: 20040901
  2. VIOXX [Suspect]
     Route: 048
     Dates: start: 20030501, end: 20040901
  3. VIOXX [Suspect]
     Indication: OSTEOARTHRITIS
     Route: 048
     Dates: start: 20030501, end: 20040901
  4. VIOXX [Suspect]
     Route: 048
     Dates: start: 20030501, end: 20040901
  5. DIOVAN [Concomitant]
     Route: 065
  6. NORVASC [Concomitant]
     Route: 065
  7. ASPIRIN [Concomitant]
     Route: 065

REACTIONS (3)
  - ACUTE MYOCARDIAL INFARCTION [None]
  - BACK PAIN [None]
  - ELECTROCARDIOGRAM ST SEGMENT ELEVATION [None]
